FAERS Safety Report 24987403 (Version 1)
Quarter: 2025Q1

REPORT INFORMATION
  Report Type: Spontaneous
  Country: NL (occurrence: NL)
  Receive Date: 20250219
  Receipt Date: 20250219
  Transmission Date: 20250409
  Serious: Yes (Other)
  Sender: ASCEND THERAPEUTICS US, LLC
  Company Number: NL-Ascend Therapeutics US, LLC-2171353

PATIENT
  Age: 41 Year
  Sex: Female

DRUGS (8)
  1. ANDROGEL [Suspect]
     Active Substance: TESTOSTERONE
     Indication: Gender dysphoria
     Dates: start: 200603
  2. ANDROGEL [Suspect]
     Active Substance: TESTOSTERONE
     Dates: start: 200603
  3. CARBOMER [Concomitant]
     Active Substance: CARBOMER
  4. CARBOXYPOLYMETHYLENE\HYALURONATE SODIUM [Concomitant]
     Active Substance: CARBOXYPOLYMETHYLENE\HYALURONATE SODIUM
  5. OLANZAPINE [Concomitant]
     Active Substance: OLANZAPINE
     Dates: start: 2021
  6. OLANZAPINE [Concomitant]
     Active Substance: OLANZAPINE
     Dates: start: 2009
  7. ANDROGEL [Suspect]
     Active Substance: TESTOSTERONE
     Dates: start: 2024
  8. ANDROGEL [Suspect]
     Active Substance: TESTOSTERONE
     Dates: start: 20240701, end: 202407

REACTIONS (8)
  - Hernia [Unknown]
  - Incorrect dose administered by product [Unknown]
  - Product use issue [Unknown]
  - Overdose [Unknown]
  - Depressed mood [Unknown]
  - Dermal absorption impaired [Unknown]
  - Blood testosterone decreased [Not Recovered/Not Resolved]
  - Feeling abnormal [Unknown]

NARRATIVE: CASE EVENT DATE: 20060301
